FAERS Safety Report 5156222-8 (Version None)
Quarter: 2006Q4

REPORT INFORMATION
  Report Type: 
  Country: None (occurrence: None)
  Receive Date: 20061122
  Receipt Date: 20061114
  Transmission Date: 20070319
  Serious: Yes (Hospitalization)
  Sender: FDA-Public Use
  Company Number: ES-AVENTIS-200615763EU

PATIENT
  Age: 87 Year
  Sex: Female

DRUGS (6)
  1. SEGURIL [Suspect]
     Indication: CARDIAC FAILURE CONGESTIVE
     Route: 048
  2. ALDACTONE [Suspect]
     Indication: CARDIAC FAILURE CONGESTIVE
     Route: 048
     Dates: end: 20060804
  3. POTASION [Suspect]
     Indication: HYPOKALAEMIA
     Route: 048
     Dates: end: 20060804
  4. ADIRO [Suspect]
     Indication: ARRHYTHMIA
     Route: 048
  5. DIGOXIN [Suspect]
     Indication: ARRHYTHMIA
     Route: 048
     Dates: start: 20020101, end: 20060804
  6. ALOPURINOL [Suspect]
     Indication: GOUT
     Route: 048

REACTIONS (3)
  - CARDIOACTIVE DRUG LEVEL INCREASED [None]
  - DRUG LEVEL INCREASED [None]
  - RENAL FAILURE ACUTE [None]
